FAERS Safety Report 8342739-1 (Version None)
Quarter: 2012Q2

REPORT INFORMATION
  Report Type: 
  Country: None (occurrence: None)
  Receive Date: 20120508
  Receipt Date: 20120501
  Transmission Date: 20120825
  Serious: Yes (Hospitalization)
  Sender: FDA-Public Use
  Company Number: US-AMGEN-USASP2012027397

PATIENT
  Age: 51 Year
  Sex: Female

DRUGS (1)
  1. ENBREL [Suspect]
     Indication: RHEUMATOID ARTHRITIS
     Dosage: 50 MG, QWK
     Dates: start: 20040101

REACTIONS (9)
  - BALANCE DISORDER [None]
  - ADVERSE EVENT [None]
  - ASTHENIA [None]
  - RHEUMATOID ARTHRITIS [None]
  - INFECTION [None]
  - WEIGHT DECREASED [None]
  - OEDEMA PERIPHERAL [None]
  - GAIT DISTURBANCE [None]
  - INTERVERTEBRAL DISC PROTRUSION [None]
